FAERS Safety Report 15494941 (Version 1)
Quarter: 2018Q4

REPORT INFORMATION
  Report Type: Spontaneous
  Country: GB (occurrence: GB)
  Receive Date: 20181012
  Receipt Date: 20181012
  Transmission Date: 20190205
  Serious: Yes (Life-Threatening)
  Sender: FDA-Public Use
  Company Number: GB-GLAXOSMITHKLINE-GB1991000001

PATIENT

DRUGS (7)
  1. DICLOFENAC [Interacting]
     Active Substance: DICLOFENAC
     Indication: HEADACHE
  2. SANDIMMUNE NEORAL (CYCLOSPORINE) [Interacting]
     Active Substance: CYCLOSPORINE
     Indication: RHEUMATOID ARTHRITIS
     Dosage: 200 MG, UNK
     Route: 065
  3. SANDIMMUNE NEORAL (CYCLOSPORINE) [Interacting]
     Active Substance: CYCLOSPORINE
     Dosage: 225 MG, UNK
     Route: 065
  4. INDOMETACIN [Interacting]
     Active Substance: INDOMETHACIN
     Indication: PRODUCT USED FOR UNKNOWN INDICATION
     Dosage: UNK
     Route: 065
  5. DICLOFENAC [Suspect]
     Active Substance: DICLOFENAC
     Indication: RHEUMATOID ARTHRITIS
     Dosage: UNK
     Route: 065
  6. INDOMETHACIN. [Interacting]
     Active Substance: INDOMETHACIN
     Indication: PRODUCT USED FOR UNKNOWN INDICATION
     Dosage: UNK
     Route: 065
  7. KETOPROFEN. [Interacting]
     Active Substance: KETOPROFEN
     Indication: RHEUMATOID ARTHRITIS
     Dosage: UNK
     Route: 065

REACTIONS (4)
  - Headache [Unknown]
  - Hypertension [Recovering/Resolving]
  - Drug interaction [Recovering/Resolving]
  - Blood creatinine increased [Recovering/Resolving]
